FAERS Safety Report 7216525-X (Version None)
Quarter: 2011Q1

REPORT INFORMATION
  Report Type: 
  Country: None (occurrence: None)
  Receive Date: 20110107
  Receipt Date: 20101230
  Transmission Date: 20110831
  Serious: Yes (Hospitalization, Other)
  Sender: FDA-Public Use
  Company Number: BE-AMGEN-BELSP2010003812

PATIENT

DRUGS (4)
  1. VECTIBIX [Suspect]
     Indication: COLON CANCER METASTATIC
     Dosage: UNK UNK, Q2WK
     Route: 042
     Dates: start: 20100517, end: 20101027
  2. ZOMETA [Concomitant]
     Dosage: 4 MG, QMO
     Route: 042
     Dates: start: 20090801, end: 20101006
  3. MINOCYCLINE HCL [Concomitant]
     Dosage: UNK
     Route: 048
     Dates: start: 20100601
  4. MEDROL [Concomitant]
     Dosage: UNK
     Route: 048
     Dates: start: 20100701

REACTIONS (3)
  - PNEUMONIA [None]
  - HYPOMAGNESAEMIA [None]
  - HYPOCALCAEMIA [None]
